FAERS Safety Report 10996628 (Version 1)
Quarter: 2015Q2

REPORT INFORMATION
  Report Type: Spontaneous
  Country: US (occurrence: None)
  Receive Date: 20150407
  Receipt Date: 20150407
  Transmission Date: 20150821
  Serious: No
  Sender: FDA-Public Use
  Company Number: None

PATIENT
  Age: 61 Year
  Sex: Male

DRUGS (1)
  1. STELARA [Suspect]
     Active Substance: USTEKINUMAB
     Indication: PRODUCT USED FOR UNKNOWN INDICATION
     Dosage: 90 MG, Q12W, SQ
     Route: 058
     Dates: start: 20150217

REACTIONS (6)
  - Hypoaesthesia [None]
  - Hot flush [None]
  - Muscular weakness [None]
  - Nausea [None]
  - Headache [None]
  - Malaise [None]

NARRATIVE: CASE EVENT DATE: 20150219
